FAERS Safety Report 23440243 (Version 3)
Quarter: 2024Q1

REPORT INFORMATION
  Report Type: Report from Study
  Country: DE (occurrence: DE)
  Receive Date: 20240124
  Receipt Date: 20240208
  Transmission Date: 20240410
  Serious: Yes (Life-Threatening)
  Sender: FDA-Public Use
  Company Number: DE-ABBVIE-5597874

PATIENT
  Sex: Female
  Weight: 40 kg

DRUGS (2)
  1. CARBIDOPA\LEVODOPA [Suspect]
     Active Substance: CARBIDOPA\LEVODOPA
     Indication: Parkinson^s disease
     Dosage: MD: 10.0ML; CRD: 3.3ML/H; ED: 1.0ML
     Route: 050
     Dates: start: 20201013, end: 20240115
  2. CARBIDOPA\LEVODOPA [Suspect]
     Active Substance: CARBIDOPA\LEVODOPA

REACTIONS (9)
  - Terminal state [Not Recovered/Not Resolved]
  - Hypophagia [Unknown]
  - Decubitus ulcer [Not Recovered/Not Resolved]
  - Intentional medical device removal by patient [Unknown]
  - Weight decreased [Not Recovered/Not Resolved]
  - Device dislocation [Not Recovered/Not Resolved]
  - Dysphagia [Not Recovered/Not Resolved]
  - Device breakage [Unknown]
  - Dementia [Unknown]
